FAERS Safety Report 22637734 (Version 1)
Quarter: 2023Q2

REPORT INFORMATION
  Report Type: Spontaneous
  Country: US (occurrence: US)
  Receive Date: 20230626
  Receipt Date: 20230626
  Transmission Date: 20230722
  Serious: No
  Sender: FDA-Public Use
  Company Number: US-AMGEN-USASP2023108744

PATIENT
  Age: 32 Year
  Sex: Female

DRUGS (5)
  1. OTEZLA [Suspect]
     Active Substance: APREMILAST
     Indication: Psoriasis
     Dosage: 30 MILLIGRAM, BID
     Route: 048
  2. BUTRANS [Concomitant]
     Active Substance: BUPRENORPHINE
  3. Bilac pres [Concomitant]
  4. OXYCODONE HYDROCHLORIDE [Concomitant]
     Active Substance: OXYCODONE HYDROCHLORIDE
  5. STELARA [Concomitant]
     Active Substance: USTEKINUMAB

REACTIONS (1)
  - Product dose omission issue [Unknown]
